FAERS Safety Report 18475671 (Version 1)
Quarter: 2020Q4

REPORT INFORMATION
  Report Type: Report from Study
  Country: US (occurrence: US)
  Receive Date: 20201106
  Receipt Date: 20201106
  Transmission Date: 20210114
  Serious: Yes (Other)
  Sender: FDA-Public Use
  Company Number: US-TAKEDA-US202006267

PATIENT
  Sex: Female
  Weight: 52.61 kg

DRUGS (8)
  1. GATTEX [Suspect]
     Active Substance: TEDUGLUTIDE\WATER
     Indication: MALABSORPTION
     Dosage: 2.45 MILLIGRAM, QOD
     Route: 058
     Dates: start: 20170831
  2. GATTEX [Suspect]
     Active Substance: TEDUGLUTIDE\WATER
     Indication: SHORT-BOWEL SYNDROME
     Dosage: 2.45 MILLIGRAM
     Route: 058
     Dates: start: 20170830
  3. GATTEX [Suspect]
     Active Substance: TEDUGLUTIDE\WATER
     Indication: MALABSORPTION
     Dosage: 2.45 MILLIGRAM, QOD
     Route: 058
     Dates: start: 20170831
  4. GATTEX [Suspect]
     Active Substance: TEDUGLUTIDE\WATER
     Indication: SHORT-BOWEL SYNDROME
     Dosage: 2.45 MILLIGRAM
     Route: 058
     Dates: start: 20170830
  5. GATTEX [Suspect]
     Active Substance: TEDUGLUTIDE\WATER
     Indication: SHORT-BOWEL SYNDROME
     Dosage: 2.45 MILLIGRAM
     Route: 058
     Dates: start: 20170830
  6. GATTEX [Suspect]
     Active Substance: TEDUGLUTIDE\WATER
     Indication: MALABSORPTION
     Dosage: 2.45 MILLIGRAM, QOD
     Route: 058
     Dates: start: 20170831
  7. GATTEX [Suspect]
     Active Substance: TEDUGLUTIDE\WATER
     Indication: MALABSORPTION
     Dosage: 2.45 MILLIGRAM, QOD
     Route: 058
     Dates: start: 20170831
  8. GATTEX [Suspect]
     Active Substance: TEDUGLUTIDE\WATER
     Indication: SHORT-BOWEL SYNDROME
     Dosage: 2.45 MILLIGRAM
     Route: 058
     Dates: start: 20170830

REACTIONS (2)
  - Intentional product misuse [Unknown]
  - Mental disorder [Unknown]
